FAERS Safety Report 4761533-1 (Version None)
Quarter: 2005Q3

REPORT INFORMATION
  Report Type: 
  Country: None (occurrence: None)
  Receive Date: 20050906
  Receipt Date: 20050425
  Transmission Date: 20060218
  Serious: Yes (Other)
  Sender: FDA-Public Use
  Company Number: 2005AC00699

PATIENT
  Age: 817 Month
  Sex: Female

DRUGS (5)
  1. CRESTOR [Suspect]
     Indication: HYPERCHOLESTEROLAEMIA
     Dosage: PREVIOUS EXPOSURE TO DRUG AT 10 MG, THEN 20 MG DAILY
     Route: 048
     Dates: start: 20050325
  2. EZETROL [Concomitant]
     Indication: HYPERCHOLESTEROLAEMIA
     Dates: start: 20040128
  3. ASPIRIN [Concomitant]
     Route: 048
     Dates: start: 19971209
  4. COZAAR [Concomitant]
     Route: 048
     Dates: start: 20041020, end: 20050627
  5. LOSEC [Concomitant]
     Route: 048

REACTIONS (3)
  - MYALGIA [None]
  - NAUSEA [None]
  - VISION BLURRED [None]
